FAERS Safety Report 7543875-X (Version None)
Quarter: 2011Q2

REPORT INFORMATION
  Report Type: 
  Country: None (occurrence: None)
  Receive Date: 20110613
  Receipt Date: 20110606
  Transmission Date: 20111010
  Serious: Yes (Other)
  Sender: FDA-Public Use
  Company Number: US-ROCHE-780909

PATIENT
  Sex: Female

DRUGS (6)
  1. FOSAMAX [Suspect]
     Indication: OSTEOPOROSIS
     Route: 065
     Dates: start: 20000101
  2. FOSAMAX PLUS D [Suspect]
     Route: 065
     Dates: start: 20020101, end: 20100101
  3. BONIVA [Suspect]
     Indication: OSTEOPOROSIS
     Route: 065
     Dates: start: 20000101
  4. BONIVA [Suspect]
     Route: 065
     Dates: start: 20020101, end: 20100101
  5. FOSAMAX PLUS D [Suspect]
     Indication: OSTEOPOROSIS
     Route: 065
     Dates: start: 20000101
  6. FOSAMAX [Suspect]
     Route: 065
     Dates: start: 20020101, end: 20100101

REACTIONS (4)
  - EMOTIONAL DISTRESS [None]
  - ANXIETY [None]
  - FEMUR FRACTURE [None]
  - SKELETAL INJURY [None]
